FAERS Safety Report 6164194-2 (Version None)
Quarter: 2009Q2

REPORT INFORMATION
  Report Type: 
  Country: None (occurrence: None)
  Receive Date: 20090422
  Receipt Date: 20090415
  Transmission Date: 20091009
  Serious: Yes (Other)
  Sender: FDA-Public Use
  Company Number: US-SANOFI-SYNTHELABO-A03200901670

PATIENT
  Age: 50 Year
  Sex: Male

DRUGS (4)
  1. PLAVIX [Suspect]
     Indication: STENT PLACEMENT
     Route: 048
  2. PLAVIX [Suspect]
     Route: 048
  3. PLAVIX [Suspect]
     Route: 048
  4. PLAVIX [Suspect]
     Route: 048

REACTIONS (5)
  - IN-STENT CORONARY ARTERY RESTENOSIS [None]
  - MYOCARDIAL ISCHAEMIA [None]
  - OVERDOSE [None]
  - RASH ERYTHEMATOUS [None]
  - STENT OCCLUSION [None]
